FAERS Safety Report 14261507 (Version 1)
Quarter: 2017Q4

REPORT INFORMATION
  Report Type: Spontaneous
  Country: KR (occurrence: KR)
  Receive Date: 20171208
  Receipt Date: 20171208
  Transmission Date: 20180321
  Serious: Yes (Other)
  Sender: FDA-Public Use
  Company Number: KR-CIPLA LTD.-2017KR22139

PATIENT

DRUGS (6)
  1. ETOPOSIDE. [Suspect]
     Active Substance: ETOPOSIDE
     Indication: OSTEOSARCOMA
     Dosage: 200 MG/M2, HIGH DOSE FROM DAY - 8 TO DAY - 5
     Route: 065
  2. MELPHALAN. [Suspect]
     Active Substance: MELPHALAN
     Indication: OSTEOSARCOMA
     Dosage: HIGH-DOSE, ON DAY - 7
     Route: 065
  3. CARBOPLATIN. [Suspect]
     Active Substance: CARBOPLATIN
     Indication: OSTEOSARCOMA
     Dosage: 400 MG/M2, HIGH DOSE, DAY -8 TO -5
     Route: 065
  4. DOXORUBICIN [Suspect]
     Active Substance: DOXORUBICIN
     Indication: OSTEOSARCOMA
     Dosage: UNK, FOUR CYCLES
     Route: 013
  5. CISPLATIN. [Suspect]
     Active Substance: CISPLATIN
     Indication: OSTEOSARCOMA
     Dosage: UNK, FOUR CYCLES
     Route: 013
  6. MELPHALAN. [Suspect]
     Active Substance: MELPHALAN
     Dosage: 70 MG/M2, HIGH-DOSE, ON DAY - 6
     Route: 065

REACTIONS (1)
  - Osteosarcoma metastatic [Unknown]
